FAERS Safety Report 11321446 (Version 1)
Quarter: 2015Q3

REPORT INFORMATION
  Report Type: Report from Study
  Country: US (occurrence: US)
  Receive Date: 20150729
  Receipt Date: 20150729
  Transmission Date: 20151125
  Serious: Yes (Hospitalization)
  Sender: FDA-Public Use
  Company Number: US-SEATTLE GENETICS-2015SGN01208

PATIENT
  Sex: Female
  Weight: 51.1 kg

DRUGS (2)
  1. BENDAMUSTINE HYDROCHLORIDE [Suspect]
     Active Substance: BENDAMUSTINE HYDROCHLORIDE
     Indication: HODGKIN^S DISEASE
     Dosage: 90 MG/M2, QCYCLE
     Route: 042
     Dates: start: 20150522, end: 20150725
  2. BRENTUXIMAB VEDOTIN [Suspect]
     Active Substance: BRENTUXIMAB VEDOTIN
     Indication: HODGKIN^S DISEASE
     Dosage: 1.8 MG/KG, Q21D
     Route: 042
     Dates: start: 20150522, end: 20150616

REACTIONS (3)
  - Deep vein thrombosis [Unknown]
  - Pneumonia [Unknown]
  - Pulmonary embolism [Unknown]
